FAERS Safety Report 10788242 (Version 1)
Quarter: 2015Q1

REPORT INFORMATION
  Report Type: Spontaneous
  Country: US (occurrence: US)
  Receive Date: 20150212
  Receipt Date: 20150212
  Transmission Date: 20150721
  Serious: No
  Sender: FDA-Public Use
  Company Number: US-009507513-1502USA004192

PATIENT

DRUGS (1)
  1. STROMECTOL [Suspect]
     Active Substance: IVERMECTIN
     Dosage: 12 MG, QD
     Route: 048
     Dates: start: 20150110

REACTIONS (3)
  - Drug prescribing error [Unknown]
  - No adverse event [Unknown]
  - Overdose [Unknown]

NARRATIVE: CASE EVENT DATE: 20150110
